FAERS Safety Report 25460576 (Version 1)
Quarter: 2025Q2

REPORT INFORMATION
  Report Type: Spontaneous
  Country: IT (occurrence: IT)
  Receive Date: 20250620
  Receipt Date: 20250620
  Transmission Date: 20250717
  Serious: Yes (Hospitalization)
  Sender: NOVA LABORATORIES LIMITED
  Company Number: IT-Nova Laboratories Limited-2179063

PATIENT
  Age: 3 Year
  Sex: Male
  Weight: 16 kg

DRUGS (5)
  1. XROMI [Suspect]
     Active Substance: HYDROXYUREA
     Indication: Acute lymphocytic leukaemia
     Dates: start: 20220929, end: 20221003
  2. METHOTREXATE SODIUM [Suspect]
     Active Substance: METHOTREXATE SODIUM
     Dates: start: 20221004, end: 20221004
  3. NYSTATIN [Concomitant]
     Active Substance: NYSTATIN
  4. TEICOPLANIN [Concomitant]
     Active Substance: TEICOPLANIN
     Dates: start: 20221003, end: 20221003
  5. METHOTREXATE SODIUM [Suspect]
     Active Substance: METHOTREXATE SODIUM
     Dates: start: 20221004, end: 20221004

REACTIONS (5)
  - Potentiating drug interaction [Recovered/Resolved]
  - Overdose [Unknown]
  - Dose calculation error [Unknown]
  - Incorrect dose administered [Unknown]
  - Hepatotoxicity [Recovered/Resolved]
